FAERS Safety Report 21199892 (Version 1)
Quarter: 2022Q3

REPORT INFORMATION
  Report Type: Spontaneous
  Country: CZ (occurrence: CZ)
  Receive Date: 20220811
  Receipt Date: 20220811
  Transmission Date: 20221027
  Serious: Yes (Life-Threatening)
  Sender: FDA-Public Use
  Company Number: CZ-drreddys-LIT/CZR/22/0153177

PATIENT
  Age: 53 Year
  Sex: Female

DRUGS (7)
  1. AZACITIDINE [Suspect]
     Active Substance: AZACITIDINE
     Indication: Chloroma
     Dosage: FOR 5 DAYS
     Route: 058
     Dates: start: 202111
  2. VENETOCLAX [Suspect]
     Active Substance: VENETOCLAX
     Indication: Chloroma
     Dosage: REDUCED DOSE FOR 21 DAYS
     Route: 048
     Dates: start: 202111
  3. VENETOCLAX [Suspect]
     Active Substance: VENETOCLAX
     Dosage: DOSE WAS REDUCED TO 75 PERCENT OF THE RECOMMENDED DOSE OF 400 MG/DAY DUE TO CONCOMITANT USE OF VORIC
  4. VENETOCLAX [Suspect]
     Active Substance: VENETOCLAX
     Dosage: IN THE SECOND CYCLE
  5. CYTARABINE [Concomitant]
     Active Substance: CYTARABINE
     Indication: Chloroma
     Dosage: HIGH-DOSE AS INDUCTION CHEMOTHERAPY
     Dates: start: 202107
  6. MITOXANTRONE [Concomitant]
     Active Substance: MITOXANTRONE HYDROCHLORIDE
     Indication: Chloroma
     Dosage: HIGH-DOSE AS INDUCTION CHEMOTHERAPY
     Dates: start: 202107
  7. VORICONAZOLE [Concomitant]
     Active Substance: VORICONAZOLE
     Indication: Antifungal prophylaxis

REACTIONS (2)
  - Myelosuppression [Unknown]
  - Haematotoxicity [Unknown]
